FAERS Safety Report 4787423-6 (Version None)
Quarter: 2005Q4

REPORT INFORMATION
  Report Type: 
  Country: None (occurrence: None)
  Receive Date: 20051003
  Receipt Date: 20050919
  Transmission Date: 20060501
  Serious: Yes (Death)
  Sender: FDA-Public Use
  Company Number: DSA_27116_2005

PATIENT
  Age: 10 Month
  Sex: Male

DRUGS (1)
  1. DILTIAZEM [Suspect]
     Dosage: DF, PO
     Route: 048

REACTIONS (10)
  - ACCIDENTAL DRUG INTAKE BY CHILD [None]
  - BLOOD GLUCOSE INCREASED [None]
  - BRADYCARDIA [None]
  - CONVULSION [None]
  - CRYING [None]
  - GENERAL PHYSICAL HEALTH DETERIORATION [None]
  - HYPOTENSION [None]
  - THERAPY NON-RESPONDER [None]
  - TREMOR [None]
  - VOMITING [None]
